FAERS Safety Report 22325951 (Version 2)
Quarter: 2023Q2

REPORT INFORMATION
  Report Type: Spontaneous
  Country: US (occurrence: US)
  Receive Date: 20230516
  Receipt Date: 20230627
  Transmission Date: 20230722
  Serious: Yes (Other)
  Sender: FDA-Public Use
  Company Number: US-ORGANON-O2304USA002063

PATIENT
  Age: 26 Year
  Sex: Female
  Weight: 143.13 kg

DRUGS (3)
  1. NEXPLANON [Suspect]
     Active Substance: ETONOGESTREL
     Indication: Contraception
     Dosage: 1 IMPLANT EVERY 3 YEARS IN LEFT UPPER ARM (DOMINANT ARM)
     Route: 059
     Dates: start: 20180301, end: 20230526
  2. NEXPLANON [Suspect]
     Active Substance: ETONOGESTREL
     Indication: Contraception
     Dosage: 1 IMPLANT (RIGHT UPPER ARM)
     Route: 059
     Dates: start: 20230418
  3. NEXPLANON [Concomitant]
     Active Substance: ETONOGESTREL
     Dosage: 1 IMPLANT
     Route: 059
     Dates: end: 20180301

REACTIONS (11)
  - Device dislocation [Recovered/Resolved]
  - Device issue [Recovered/Resolved]
  - Device placement issue [Recovered/Resolved]
  - Encapsulation reaction [Not Recovered/Not Resolved]
  - Complication of device removal [Recovered/Resolved]
  - Complication associated with device [Recovered/Resolved]
  - Implant site scar [Not Recovered/Not Resolved]
  - Device placement issue [Recovered/Resolved]
  - Device use issue [Unknown]
  - Incorrect product administration duration [Unknown]
  - Overdose [Unknown]

NARRATIVE: CASE EVENT DATE: 20180301
